FAERS Safety Report 9111439 (Version 1)
Quarter: 2013Q1

REPORT INFORMATION
  Report Type: Spontaneous
  Country: US (occurrence: US)
  Receive Date: 20130219
  Receipt Date: 20130219
  Transmission Date: 20140127
  Serious: No
  Sender: FDA-Public Use
  Company Number: US-BRISTOL-MYERS SQUIBB COMPANY-16440661

PATIENT
  Age: 57 Year
  Sex: Male

DRUGS (1)
  1. ORENCIA FOR INJ [Suspect]
     Indication: RHEUMATOID ARTHRITIS
     Dosage: LAST INJ ON 03MAR2012
     Route: 058
     Dates: start: 20111105

REACTIONS (3)
  - Pain in extremity [Unknown]
  - Local swelling [Unknown]
  - Nausea [Unknown]
